FAERS Safety Report 24105165 (Version 2)
Quarter: 2024Q3

REPORT INFORMATION
  Report Type: Spontaneous
  Country: FI (occurrence: FI)
  Receive Date: 20240717
  Receipt Date: 20240719
  Transmission Date: 20241016
  Serious: Yes (Disabling)
  Sender: OTSUKA
  Company Number: None

PATIENT
  Age: 17 Year
  Sex: Male

DRUGS (13)
  1. ABILIFY [Suspect]
     Active Substance: ARIPIPRAZOLE
     Indication: Depression
     Dosage: 7.5 MG, QD (IN THE EVENINGS)
     Route: 048
     Dates: start: 2010, end: 2010
  2. ABILIFY [Suspect]
     Active Substance: ARIPIPRAZOLE
     Indication: Obsessive-compulsive disorder
  3. ABILIFY [Suspect]
     Active Substance: ARIPIPRAZOLE
     Indication: Psychotic disorder
  4. CIPRALEX [Suspect]
     Active Substance: ESCITALOPRAM OXALATE
     Indication: Depression
     Dosage: UNK
     Route: 065
     Dates: start: 2007, end: 2009
  5. CIPRALEX [Suspect]
     Active Substance: ESCITALOPRAM OXALATE
     Indication: Obsessive-compulsive disorder
     Dosage: 10-20 MG IN THE MORNINGS , QD (DOSE VARIES)
     Route: 048
     Dates: start: 2010, end: 2010
  6. CIPRALEX [Suspect]
     Active Substance: ESCITALOPRAM OXALATE
     Indication: Psychotic disorder
  7. RISPERDAL [Suspect]
     Active Substance: RISPERIDONE
     Indication: Depression
     Dosage: 0.5 - 1 MG IN THE EVENINGS, QD (DOSE VARIES)
     Route: 048
     Dates: start: 2010, end: 2010
  8. RISPERDAL [Suspect]
     Active Substance: RISPERIDONE
     Indication: Obsessive-compulsive disorder
  9. RISPERDAL [Suspect]
     Active Substance: RISPERIDONE
     Indication: Psychotic disorder
  10. QUETIAPINE FUMARATE [Suspect]
     Active Substance: QUETIAPINE FUMARATE
     Indication: Depression
     Dosage: 25 - 100 MG IN THE EVENINGS, QD (DOSAGE VARIES)
     Route: 048
     Dates: start: 2010, end: 2010
  11. QUETIAPINE FUMARATE [Suspect]
     Active Substance: QUETIAPINE FUMARATE
     Indication: Obsessive-compulsive disorder
  12. QUETIAPINE FUMARATE [Suspect]
     Active Substance: QUETIAPINE FUMARATE
     Indication: Psychotic disorder
  13. IMOVANE [Concomitant]
     Active Substance: ZOPICLONE
     Indication: Initial insomnia
     Dosage: 1/2 - 1 TABLET IN THE EVENINGS, AS NECESSARY, IN USE A FEW NIGHTS
     Route: 048
     Dates: start: 2010, end: 2010

REACTIONS (3)
  - Anhedonia [Recovered/Resolved with Sequelae]
  - Sexual dysfunction [Recovered/Resolved with Sequelae]
  - Product use in unapproved indication [Unknown]

NARRATIVE: CASE EVENT DATE: 20100101
